FAERS Safety Report 7093035-4 (Version None)
Quarter: 2010Q4

REPORT INFORMATION
  Report Type: 
  Country: None (occurrence: None)
  Receive Date: 20101109
  Receipt Date: 20101109
  Transmission Date: 20110411
  Serious: Yes (Other)
  Sender: FDA-Public Use
  Company Number: None

PATIENT
  Sex: Female
  Weight: 68.0396 kg

DRUGS (1)
  1. CORGARD [Suspect]
     Indication: HYPERTENSION
     Dosage: 20MG 1 PER DAY PO
     Route: 048
     Dates: start: 20101101, end: 20101104

REACTIONS (4)
  - ABNORMAL SENSATION IN EYE [None]
  - HEADACHE [None]
  - PRODUCT QUALITY ISSUE [None]
  - VISION BLURRED [None]
